FAERS Safety Report 7598157-7 (Version None)
Quarter: 2011Q3

REPORT INFORMATION
  Report Type: 
  Country: None (occurrence: None)
  Receive Date: 20110708
  Receipt Date: 20110623
  Transmission Date: 20111222
  Serious: No
  Sender: FDA-Public Use
  Company Number: US-B.I. PHARMACEUTICALS,INC./RIDGEFIELD-2011-BP-09075BP

PATIENT
  Age: 82 Year
  Sex: Female
  Weight: 50.8 kg

DRUGS (8)
  1. ARICEPT [Concomitant]
     Dosage: 5 MG
     Dates: start: 20110420
  2. ZYRTEC [Concomitant]
     Dosage: 10 MG
  3. PRADAXA [Suspect]
     Indication: ATRIAL FIBRILLATION
     Dosage: 300 MG
     Route: 048
     Dates: start: 20110311
  4. LIPITOR [Concomitant]
     Dosage: 20 MG
  5. PRADAXA [Suspect]
     Indication: CEREBROVASCULAR ACCIDENT PROPHYLAXIS
  6. SOTALOL HCL [Concomitant]
  7. TIKOSYN [Concomitant]
     Dosage: 250 MG
     Dates: end: 20110329
  8. ACEBUTOLOL [Concomitant]
     Dosage: 400 MG

REACTIONS (1)
  - CONFUSIONAL STATE [None]
